FAERS Safety Report 10135623 (Version 2)
Quarter: 2015Q1

REPORT INFORMATION
  Report Type: Other
  Country: US (occurrence: US)
  Receive Date: 20140428
  Receipt Date: 20150212
  Transmission Date: 20150720
  Serious: Yes (Death, Hospitalization, Other)
  Sender: FDA-Public Use
  Company Number: US-GSKPPD-2014GSK037231

PATIENT
  Age: 65 Year
  Sex: Male

DRUGS (8)
  1. PLAVIX [Concomitant]
     Active Substance: CLOPIDOGREL BISULFATE
  2. ISORDIL [Concomitant]
     Active Substance: ISOSORBIDE DINITRATE
  3. ASPIRIN. [Concomitant]
     Active Substance: ASPIRIN
  4. DIOVAN [Concomitant]
     Active Substance: VALSARTAN
  5. LASIX [Concomitant]
     Active Substance: FUROSEMIDE
  6. AVANDIA [Suspect]
     Active Substance: ROSIGLITAZONE MALEATE
     Indication: DIABETES MELLITUS
     Dosage: DATES OF AVANDIA USE COULD NOT BE CONFIRMED IN RECORDS REVIEWED
     Route: 048
  7. COREG [Concomitant]
     Active Substance: CARVEDILOL
  8. NITROGLYCERIN. [Concomitant]
     Active Substance: NITROGLYCERIN
     Dosage: P.R.N.

REACTIONS (2)
  - Cardio-respiratory arrest [Fatal]
  - Myocardial infarction [Recovered/Resolved]

NARRATIVE: CASE EVENT DATE: 20071207
